FAERS Safety Report 5834788-X (Version None)
Quarter: 2008Q3

REPORT INFORMATION
  Report Type: 
  Country: None (occurrence: None)
  Receive Date: 20080804
  Receipt Date: 20080702
  Transmission Date: 20090109
  Serious: Yes (Death)
  Sender: FDA-Public Use
  Company Number: 20084985

PATIENT
  Sex: Female

DRUGS (1)
  1. LIORESAL [Suspect]
     Indication: MUSCLE SPASTICITY
     Dosage: 250 MCG, DAILY, INTRATHECAL
     Route: 037

REACTIONS (6)
  - DYSPHAGIA [None]
  - MUSCLE RIGIDITY [None]
  - MUSCLE SPASTICITY [None]
  - PNEUMONIA [None]
  - THERAPEUTIC RESPONSE UNEXPECTED [None]
  - URINARY TRACT INFECTION [None]
